FAERS Safety Report 9798446 (Version 2)
Quarter: 2014Q1

REPORT INFORMATION
  Report Type: Spontaneous
  Country: US (occurrence: US)
  Receive Date: 20140106
  Receipt Date: 20140328
  Transmission Date: 20141002
  Serious: Yes (Congenital Anomaly, Other)
  Sender: FDA-Public Use
  Company Number: US-PFIZER INC-2014000808

PATIENT
  Sex: Female

DRUGS (24)
  1. ZOLOFT [Suspect]
     Dosage: UNK
     Route: 064
     Dates: start: 2007, end: 2011
  2. SERTRALINE HCL [Suspect]
     Indication: ANXIETY
     Dosage: UNK
     Route: 064
     Dates: start: 2007, end: 2011
  3. SERTRALINE HCL [Suspect]
     Indication: DEPRESSION
  4. SERTRALINE HCL [Suspect]
     Indication: AFFECTIVE DISORDER
  5. NEURONTIN [Concomitant]
     Dosage: UNK
     Route: 064
  6. ATIVAN [Concomitant]
     Dosage: UNK
     Route: 064
  7. TRAMADOL [Concomitant]
     Dosage: UNK
     Route: 064
  8. SOMA [Concomitant]
     Dosage: UNK
     Route: 064
  9. PRENATE ELITE [Concomitant]
     Dosage: UNK
     Route: 064
  10. PERCOCET [Concomitant]
     Dosage: UNK
     Route: 064
  11. CYMBALTA [Concomitant]
     Dosage: UNK
     Route: 064
  12. PREDNISONE [Concomitant]
     Dosage: UNK
     Route: 064
  13. ADVAIR [Concomitant]
     Dosage: UNK
     Route: 064
  14. BENZONATATE [Concomitant]
     Dosage: UNK
     Route: 064
  15. VENTOLIN [Concomitant]
     Dosage: UNK
     Route: 064
  16. ADVAIR DISKUS [Concomitant]
     Dosage: UNK
     Route: 064
  17. PREVACID [Concomitant]
     Dosage: UNK
     Route: 064
  18. ONDANSETRON [Concomitant]
     Dosage: UNK
     Route: 064
  19. AMOXICILLIN [Concomitant]
     Dosage: UNK
     Route: 064
  20. NASONEX [Concomitant]
     Dosage: UNK
     Route: 064
  21. GABAPENTINE [Concomitant]
     Dosage: UNK
     Route: 064
  22. LORATADINE [Concomitant]
     Dosage: UNK
     Route: 064
  23. IBUPROFEN [Concomitant]
     Dosage: 800 MG, UNK
     Route: 064
  24. VALTREX [Concomitant]
     Dosage: UNK
     Route: 064

REACTIONS (5)
  - Maternal exposure during pregnancy [Unknown]
  - Hypoplastic right heart syndrome [Unknown]
  - Pulmonary valve stenosis [Unknown]
  - Atrial septal defect [Unknown]
  - Duodenogastric reflux [Unknown]
